FAERS Safety Report 11091952 (Version 2)
Quarter: 2016Q4

REPORT INFORMATION
  Report Type: Report from Study
  Country: UA (occurrence: UA)
  Receive Date: 20150505
  Receipt Date: 20161208
  Transmission Date: 20170206
  Serious: Yes (Hospitalization, Other)
  Sender: FDA-Public Use
  Company Number: DE-ACTELION-A-US2015-117384

PATIENT
  Age: 67 Year
  Sex: Female

DRUGS (4)
  1. ACTOVEGIN [Concomitant]
     Active Substance: UNSPECIFIED INGREDIENT
  2. VENTAVIS [Suspect]
     Active Substance: ILOPROST
     Indication: PULMONARY HYPERTENSION
     Dosage: DAILY DOSE 15 MG
     Route: 055
     Dates: start: 20140930, end: 20150420
  3. PENTOXYPHYLLINUM [Concomitant]
  4. THIOTRIAZOLIN [Concomitant]

REACTIONS (3)
  - Injury [Recovering/Resolving]
  - Erysipelas [Recovering/Resolving]
  - Skin ulcer [Unknown]

NARRATIVE: CASE EVENT DATE: 20150321
